FAERS Safety Report 4532168-0 (Version None)
Quarter: 2004Q4

REPORT INFORMATION
  Report Type: 
  Country: None (occurrence: None)
  Receive Date: 20041217
  Receipt Date: 20041206
  Transmission Date: 20050328
  Serious: Yes (Death, Hospitalization, Other)
  Sender: FDA-Public Use
  Company Number: 01/00078-FRA

PATIENT
  Age: 62 Year
  Sex: Male
  Weight: 85 kg

DRUGS (8)
  1. FLUDARABINE+CYCLOPHOSPHAMIDE (FLUDARABINE ORAL + CYCLOPHOSPHAMIDE) (FL [Suspect]
     Indication: CHRONIC LYMPHOCYTIC LEUKAEMIA STAGE 1
     Dosage: RESPECTIVELY 30 MG/M2 AND 200 MG, ORAL
     Route: 048
     Dates: start: 20001208, end: 20010123
  2. ZOPHREN (ONDANSETRON) [Concomitant]
  3. LEXOMIL (BROMAZEPAM) [Concomitant]
  4. OMEPRAZOLE [Concomitant]
  5. ZOLPIDEM TARTRATE [Concomitant]
  6. PAROXETINE HCL [Concomitant]
  7. PREDNISONE TAB [Concomitant]
  8. TRANSIPEG (MACROGOL) [Concomitant]

REACTIONS (12)
  - BRONCHOSCOPY ABNORMAL [None]
  - CHOLESTASIS [None]
  - COUGH [None]
  - CYTOLYTIC HEPATITIS [None]
  - DISEASE PROGRESSION [None]
  - FOCAL NODULAR HYPERPLASIA [None]
  - INFECTION [None]
  - LYMPHOCYTOSIS [None]
  - NEUTROPENIA [None]
  - PYREXIA [None]
  - STAPHYLOCOCCAL INFECTION [None]
  - THROMBOCYTOPENIA [None]
